FAERS Safety Report 7326693-7 (Version None)
Quarter: 2011Q1

REPORT INFORMATION
  Report Type: 
  Country: None (occurrence: None)
  Receive Date: 20110302
  Receipt Date: 20110228
  Transmission Date: 20110831
  Serious: Yes (Other)
  Sender: FDA-Public Use
  Company Number: IT-SANOFI-AVENTIS-2011SA012134

PATIENT
  Age: 84 Year
  Sex: Male

DRUGS (7)
  1. PLAVIX [Suspect]
     Dosage: DOSE:1 UNIT(S)
     Route: 048
     Dates: start: 20100901, end: 20110216
  2. ASPIRIN [Suspect]
     Route: 048
     Dates: start: 20100901, end: 20110216
  3. TORVAST [Concomitant]
     Route: 048
  4. RAMIPRIL [Concomitant]
     Route: 048
  5. OMEPRAZOLE [Concomitant]
     Route: 065
  6. COUMADIN [Suspect]
     Indication: ATRIAL FIBRILLATION
     Dosage: DOSE:1 UNIT(S)
     Route: 048
     Dates: start: 20110127, end: 20110216
  7. LASIX [Concomitant]
     Route: 048

REACTIONS (2)
  - INTERNATIONAL NORMALISED RATIO INCREASED [None]
  - EPISTAXIS [None]
